FAERS Safety Report 6543977-0 (Version None)
Quarter: 2010Q1

REPORT INFORMATION
  Report Type: 
  Country: None (occurrence: None)
  Receive Date: 20100120
  Receipt Date: 20100108
  Transmission Date: 20100710
  Serious: Yes (Other)
  Sender: FDA-Public Use
  Company Number: PHHY2009JP58982

PATIENT
  Age: 47 Year
  Sex: Female

DRUGS (4)
  1. SIMULECT [Suspect]
     Indication: RENAL TRANSPLANT
     Route: 042
  2. ADRENOCORTICOTROPHIC HORMONE [Concomitant]
     Indication: RENAL TRANSPLANT
  3. PROGRAF [Concomitant]
     Indication: RENAL TRANSPLANT
  4. CELLCEPT [Concomitant]
     Indication: RENAL TRANSPLANT

REACTIONS (5)
  - CYTOMEGALOVIRUS INFECTION [None]
  - DUODENAL ULCER HAEMORRHAGE [None]
  - HAEMODIALYSIS [None]
  - RENAL FAILURE ACUTE [None]
  - RENAL TUBULAR DISORDER [None]
